FAERS Safety Report 5782263-3 (Version None)
Quarter: 2008Q2

REPORT INFORMATION
  Report Type: 
  Country: None (occurrence: None)
  Receive Date: 20080623
  Receipt Date: 20080610
  Transmission Date: 20081010
  Serious: Yes (Death)
  Sender: FDA-Public Use
  Company Number: ES-PFIZER INC-2008047051

PATIENT
  Age: 78 Year
  Sex: Female

DRUGS (5)
  1. ALDACTONE [Suspect]
     Indication: HYPERTENSION
     Dosage: DAILY DOSE:25MG
     Route: 048
  2. COROPRES [Interacting]
     Indication: HYPERTENSION
     Dosage: DAILY DOSE:12.5MG
     Route: 048
     Dates: start: 20071128, end: 20080128
  3. ENALAPRIL MALEATE [Interacting]
     Indication: HYPERTENSION
     Dosage: DAILY DOSE:20MG
     Route: 048
  4. FUROSEMIDE [Interacting]
     Indication: HYPERTENSION
     Dosage: DAILY DOSE:40MG
     Route: 048
  5. SINTROM [Concomitant]

REACTIONS (1)
  - NO ADVERSE EVENT [None]
